FAERS Safety Report 21319727 (Version 3)
Quarter: 2025Q3

REPORT INFORMATION
  Report Type: Spontaneous
  Country: US (occurrence: US)
  Receive Date: 20220911
  Receipt Date: 20250917
  Transmission Date: 20251021
  Serious: No
  Sender: SANOFI AVENTIS
  Company Number: US-SA-2022SA368001

PATIENT
  Age: 21 Year
  Sex: Female
  Weight: 56.6 kg

DRUGS (5)
  1. DUPIXENT [Suspect]
     Active Substance: DUPILUMAB
     Indication: Dermatitis atopic
     Dosage: 300 MG, QOW
     Route: 058
     Dates: start: 202208, end: 20250610
  2. SYNAGIS [Concomitant]
     Active Substance: PALIVIZUMAB
  3. STERILE WATER [Concomitant]
     Active Substance: WATER
  4. VITAMIN D3 [Concomitant]
     Active Substance: CHOLECALCIFEROL
  5. VITAMINS [Concomitant]
     Active Substance: VITAMINS

REACTIONS (2)
  - Dry skin [Unknown]
  - Pruritus [Recovered/Resolved]
